FAERS Safety Report 6108654-9 (Version None)
Quarter: 2009Q1

REPORT INFORMATION
  Report Type: 
  Country: None (occurrence: None)
  Receive Date: 20090305
  Receipt Date: 20090225
  Transmission Date: 20090719
  Serious: Yes (Death, Hospitalization)
  Sender: FDA-Public Use
  Company Number: DAV-AE-MTX-09-011

PATIENT
  Age: 45 Year
  Sex: Male

DRUGS (4)
  1. METHOTREXATE [Suspect]
     Indication: NEOPLASM MALIGNANT
     Dosage: 3.5G/M SQ PER DAY
  2. CISPLATIN [Concomitant]
  3. BLEOMYCIN SULFATE [Concomitant]
  4. ETOPOSIDE [Concomitant]

REACTIONS (2)
  - CEREBRAL HAEMORRHAGE [None]
  - COMA [None]
